FAERS Safety Report 5749339-8 (Version None)
Quarter: 2008Q2

REPORT INFORMATION
  Report Type: 
  Country: None (occurrence: None)
  Receive Date: 20080521
  Receipt Date: 20080521
  Transmission Date: 20081010
  Serious: Yes (Death)
  Sender: FDA-Public Use
  Company Number: None

PATIENT
  Age: 87 Year
  Sex: Female
  Weight: 48.0813 kg

DRUGS (1)
  1. DIGITEK ACTAVIS INC [Suspect]
     Indication: HEART RATE INCREASED
     Dosage: 0.125 MG DAILY PO
     Route: 048
     Dates: start: 20071016, end: 20080416

REACTIONS (3)
  - COMA [None]
  - PHARMACEUTICAL PRODUCT COMPLAINT [None]
  - THERAPEUTIC AGENT TOXICITY [None]
